FAERS Safety Report 6632713-5 (Version None)
Quarter: 2010Q1

REPORT INFORMATION
  Report Type: 
  Country: None (occurrence: None)
  Receive Date: 20100312
  Receipt Date: 20100301
  Transmission Date: 20100710
  Serious: Yes (Hospitalization, Other)
  Sender: FDA-Public Use
  Company Number: US-ELI_LILLY_AND_COMPANY-US200911004693

PATIENT
  Sex: Female

DRUGS (8)
  1. FORTEO [Suspect]
     Indication: OSTEOPOROSIS
     Dosage: 20 UG, DAILY (1/D)
     Dates: start: 20090401
  2. FORTEO [Suspect]
     Dosage: 20 UG, DAILY (1/D)
     Route: 065
  3. BACLOFEN [Concomitant]
  4. AMANTADINE HCL [Concomitant]
  5. ZANAFLEX [Concomitant]
  6. NITROFURANTOIN [Concomitant]
  7. OXYBUTYNIN [Concomitant]
  8. NEURONTIN [Concomitant]
     Dosage: UNK, UNKNOWN
     Route: 065

REACTIONS (2)
  - OSTEOMYELITIS [None]
  - SKIN ULCER [None]
